FAERS Safety Report 17741497 (Version 1)
Quarter: 2020Q2

REPORT INFORMATION
  Report Type: Spontaneous
  Country: CA (occurrence: CA)
  Receive Date: 20200504
  Receipt Date: 20200504
  Transmission Date: 20200714
  Serious: Yes (Hospitalization, Other)
  Sender: FDA-Public Use
  Company Number: CA-PFIZER INC-2020174130

PATIENT
  Age: 64 Year
  Sex: Female
  Weight: 70 kg

DRUGS (3)
  1. TYLENOL EXTRA STRENGTH [Suspect]
     Active Substance: ACETAMINOPHEN
     Dosage: 30 DF
  2. IMOVANE [Suspect]
     Active Substance: ZOPICLONE
     Dosage: 15 G
  3. VENLAFAXINE HCL [Suspect]
     Active Substance: VENLAFAXINE HYDROCHLORIDE
     Dosage: 30 DF

REACTIONS (8)
  - Intentional overdose [Recovered/Resolved]
  - Skin abrasion [Recovered/Resolved]
  - Hypokalaemia [Recovered/Resolved]
  - Somnolence [Recovered/Resolved]
  - Alanine aminotransferase increased [Recovered/Resolved]
  - Aspartate aminotransferase increased [Recovered/Resolved]
  - Fall [Recovered/Resolved]
  - International normalised ratio increased [Recovered/Resolved]
